FAERS Safety Report 8477693-5 (Version None)
Quarter: 2012Q2

REPORT INFORMATION
  Report Type: 
  Country: None (occurrence: None)
  Receive Date: 20120629
  Receipt Date: 20120620
  Transmission Date: 20120825
  Serious: Yes (Other)
  Sender: FDA-Public Use
  Company Number: US-SANOFI-AVENTIS-2012SA045142

PATIENT
  Sex: Female

DRUGS (2)
  1. RANOLAZINE [Suspect]
     Route: 065
  2. MULTAQ [Suspect]
     Route: 048

REACTIONS (3)
  - DYSPNOEA [None]
  - VENTRICULAR EXTRASYSTOLES [None]
  - FATIGUE [None]
